FAERS Safety Report 25631813 (Version 1)
Quarter: 2025Q3

REPORT INFORMATION
  Report Type: Report from Study
  Country: CA (occurrence: CA)
  Receive Date: 20250801
  Receipt Date: 20250801
  Transmission Date: 20251021
  Serious: Yes (Hospitalization, Other)
  Sender: TEVA
  Company Number: CA-TEVA-VS-3356298

PATIENT
  Age: 56 Year
  Sex: Female

DRUGS (6)
  1. ACETAMINOPHEN AND CODEINE [Suspect]
     Active Substance: ACETAMINOPHEN\CODEINE PHOSPHATE
     Indication: Product used for unknown indication
     Route: 065
  2. SYNTHROID [Concomitant]
     Active Substance: LEVOTHYROXINE SODIUM
     Indication: Hypothyroidism
  3. SILIQ [Suspect]
     Active Substance: BRODALUMAB
     Indication: Psoriasis
     Dosage: 2 SINGLE USE PREFILLED SYRINGES
     Route: 058
  4. SILIQ [Suspect]
     Active Substance: BRODALUMAB
     Indication: Psoriasis
     Dosage: 2 SINGLE USE PREFILLED SYRINGES
     Route: 058
  5. SILIQ [Suspect]
     Active Substance: BRODALUMAB
     Indication: Psoriasis
     Dosage: 2 SINGLE USE PREFILLED SYRINGES
     Route: 058
  6. SILIQ [Suspect]
     Active Substance: BRODALUMAB
     Indication: Psoriasis
     Dosage: DOSE FORM: SOLUTION SUBCUTANEOUS, 2 SINGLE USE PREFILLED SYRINGES
     Route: 058

REACTIONS (11)
  - Chest pain [Not Recovered/Not Resolved]
  - Gastrointestinal disorder [Not Recovered/Not Resolved]
  - Skin ulcer [Not Recovered/Not Resolved]
  - Off label use [Not Recovered/Not Resolved]
  - Nasal ulcer [Not Recovered/Not Resolved]
  - Urticaria [Not Recovered/Not Resolved]
  - Hypertension [Not Recovered/Not Resolved]
  - Myalgia [Not Recovered/Not Resolved]
  - Disease recurrence [Not Recovered/Not Resolved]
  - Arthralgia [Not Recovered/Not Resolved]
  - Viral infection [Not Recovered/Not Resolved]
